FAERS Safety Report 8197346-0 (Version None)
Quarter: 2012Q1

REPORT INFORMATION
  Report Type: 
  Country: None (occurrence: None)
  Receive Date: 20120309
  Receipt Date: 20120302
  Transmission Date: 20120608
  Serious: Yes (Other)
  Sender: FDA-Public Use
  Company Number: IE-PFIZER INC-2012057876

PATIENT
  Age: 60 Year
  Sex: Female

DRUGS (4)
  1. MEROPENEM [Concomitant]
     Indication: NEUTROPENIC SEPSIS
     Dosage: 1G, UNK
     Route: 042
     Dates: start: 20120208
  2. DOXYCYCLINE [Concomitant]
     Indication: NEUTROPENIC SEPSIS
     Dosage: 50 MG, 2X/DAY
     Route: 042
     Dates: start: 20120213
  3. ECALTA [Suspect]
     Indication: CANDIDIASIS
     Dosage: 200 MG, 1X/DAY
     Route: 042
     Dates: start: 20120214
  4. CUBICIN [Concomitant]
     Indication: NEUTROPENIC SEPSIS
     Dosage: UNK
     Route: 042
     Dates: start: 20120208

REACTIONS (2)
  - BURNING SENSATION [None]
  - RASH [None]
